FAERS Safety Report 8117266-7 (Version None)
Quarter: 2012Q1

REPORT INFORMATION
  Report Type: 
  Country: None (occurrence: None)
  Receive Date: 20120206
  Receipt Date: 20120202
  Transmission Date: 20120608
  Serious: Yes (Hospitalization)
  Sender: FDA-Public Use
  Company Number: GB-MERCK-1202GBR00024

PATIENT
  Age: 31 Year
  Sex: Female
  Weight: 46 kg

DRUGS (5)
  1. SINGULAIR [Suspect]
     Indication: ASTHMA
     Route: 048
     Dates: start: 20110601, end: 20120116
  2. ACETAMINOPHEN AND CODEINE [Concomitant]
     Route: 065
  3. ALBUTEROL [Concomitant]
     Route: 065
  4. FLUTICASONE PROPIONATE AND SALMETEROL XINAFOATE [Concomitant]
     Route: 065
  5. MAXALT [Concomitant]
     Route: 048

REACTIONS (4)
  - ABDOMINAL PAIN [None]
  - VOMITING [None]
  - LIVER FUNCTION TEST ABNORMAL [None]
  - NAUSEA [None]
